FAERS Safety Report 25375156 (Version 1)
Quarter: 2025Q2

REPORT INFORMATION
  Report Type: Report from Study
  Country: IN (occurrence: IN)
  Receive Date: 20250529
  Receipt Date: 20250529
  Transmission Date: 20250716
  Serious: Yes (Other)
  Sender: ROCHE
  Company Number: IN-ROCHE-10000291785

PATIENT

DRUGS (2)
  1. BEVACIZUMAB [Suspect]
     Active Substance: BEVACIZUMAB
     Indication: Hepatocellular carcinoma
     Route: 065
  2. ATEZOLIZUMAB [Suspect]
     Active Substance: ATEZOLIZUMAB
     Indication: Hepatocellular carcinoma
     Route: 065

REACTIONS (8)
  - Bleeding varicose vein [Unknown]
  - Aspartate aminotransferase increased [Unknown]
  - Jaundice [Unknown]
  - Haemorrhage intracranial [Unknown]
  - Epistaxis [Unknown]
  - Mouth ulceration [Unknown]
  - Rash [Unknown]
  - Colitis [Unknown]
